FAERS Safety Report 9648147 (Version 1)
Quarter: 2013Q4

REPORT INFORMATION
  Report Type: Report from Study
  Country: JP (occurrence: JP)
  Receive Date: 20131028
  Receipt Date: 20131028
  Transmission Date: 20140711
  Serious: Yes (Hospitalization)
  Sender: FDA-Public Use
  Company Number: PHHY2013JP120722

PATIENT
  Age: 73 Year
  Sex: Male

DRUGS (19)
  1. CLOZARIL [Suspect]
     Indication: SCHIZOPHRENIA, DISORGANISED TYPE
     Dosage: 12.5 MG, UNK
     Route: 048
     Dates: start: 20130320
  2. CLOZARIL [Suspect]
     Dosage: 25 MG, UNK
     Route: 048
     Dates: start: 20130321
  3. CLOZARIL [Suspect]
     Dosage: 50 MG, UNK
     Route: 048
     Dates: start: 20130324
  4. CLOZARIL [Suspect]
     Dosage: 75 MG, UNK
     Route: 048
     Dates: start: 20130327
  5. CLOZARIL [Suspect]
     Dosage: 100 MG, UNK
     Route: 048
     Dates: start: 20130630
  6. CLOZARIL [Suspect]
     Dosage: 75 MG, UNK
     Route: 048
     Dates: start: 20130402, end: 20130404
  7. CONTOMIN [Concomitant]
     Dosage: 300 MG, UNK
     Route: 048
     Dates: start: 20130320
  8. CONTOMIN [Concomitant]
     Dosage: 100 MG, UNK
     Route: 048
     Dates: start: 20130323
  9. LINTON [Concomitant]
     Dosage: 9 MG, UNK
     Route: 048
     Dates: start: 20130320
  10. LINTON [Concomitant]
     Dosage: 6 MG, UNK
     Route: 048
     Dates: start: 20130323
  11. RISPERIDONE [Concomitant]
     Dosage: 6 MG, UNK
     Route: 048
     Dates: start: 20130407
  12. RISPERIDONE [Concomitant]
     Dosage: 8 MG, UNK
     Route: 048
  13. RISPERIDONE [Concomitant]
     Dosage: 6 MG, UNK
     Route: 048
  14. MAGMITT [Concomitant]
     Indication: SCHIZOPHRENIA, DISORGANISED TYPE
     Dosage: 2970 MG, UNK
     Route: 048
     Dates: start: 20130320
  15. POLYFUL [Concomitant]
     Indication: SCHIZOPHRENIA, DISORGANISED TYPE
     Dosage: 1500 MG, UNK
     Route: 048
     Dates: start: 20130320
  16. LIMAS [Concomitant]
     Indication: SCHIZOPHRENIA, DISORGANISED TYPE
     Dosage: 600 MG, UNK
     Route: 048
     Dates: start: 20130320
  17. TASMOLIN//BIPERIDEN HYDROCHLORIDE [Concomitant]
     Indication: SCHIZOPHRENIA, DISORGANISED TYPE
     Dosage: 3 MG, UNK
     Route: 048
     Dates: start: 20130320
  18. TASMOLIN//BIPERIDEN HYDROCHLORIDE [Concomitant]
     Dosage: 2 MG, UNK
     Route: 048
     Dates: start: 20130323
  19. FERO-GRADUMET [Concomitant]
     Dosage: 210 MG, UNK
     Route: 048
     Dates: start: 20130529

REACTIONS (4)
  - Colon cancer [Not Recovered/Not Resolved]
  - Haematochezia [Unknown]
  - Haemoglobin decreased [Unknown]
  - Heart rate increased [Unknown]
